FAERS Safety Report 14311922 (Version 2)
Quarter: 2018Q1

REPORT INFORMATION
  Report Type: Report from Study
  Country: None (occurrence: US)
  Receive Date: 20171221
  Receipt Date: 20180105
  Transmission Date: 20180509
  Serious: Yes (Death, Hospitalization, Other)
  Sender: FDA-Public Use
  Company Number: US-ABBVIE-17K-163-2200343-00

PATIENT
  Age: 66 Year
  Sex: Male

DRUGS (1)
  1. HUMIRA [Suspect]
     Active Substance: ADALIMUMAB
     Indication: RHEUMATOID ARTHRITIS
     Route: 058

REACTIONS (6)
  - Syncope [Fatal]
  - Coma [Fatal]
  - Renal failure [Fatal]
  - Pneumonia fungal [Fatal]
  - Pneumonia bacterial [Fatal]
  - Hepatic failure [Fatal]

NARRATIVE: CASE EVENT DATE: 201711
